FAERS Safety Report 17932449 (Version 1)
Quarter: 2020Q2

REPORT INFORMATION
  Report Type: Spontaneous
  Country: GB (occurrence: GB)
  Receive Date: 20200624
  Receipt Date: 20200624
  Transmission Date: 20200714
  Serious: Yes (Life-Threatening)
  Sender: FDA-Public Use
  Company Number: GB-TEVA-2020-GB-1789908

PATIENT
  Age: 28 Year
  Sex: Female
  Weight: 74 kg

DRUGS (2)
  1. PHENOXYMETHYLPENICILLIN [Suspect]
     Active Substance: PENICILLIN V
     Dosage: 250 MG
     Dates: start: 20200529
  2. AMOXICILLIN. [Suspect]
     Active Substance: AMOXICILLIN
     Dates: start: 20200529

REACTIONS (2)
  - Angioedema [Recovered/Resolved]
  - Drug hypersensitivity [Unknown]
